FAERS Safety Report 14642701 (Version 1)
Quarter: 2018Q1

REPORT INFORMATION
  Report Type: Spontaneous
  Country: US (occurrence: US)
  Receive Date: 20180315
  Receipt Date: 20180315
  Transmission Date: 20180509
  Serious: Yes (Hospitalization)
  Sender: FDA-Public Use
  Company Number: None

PATIENT
  Age: 61 Year
  Sex: Male
  Weight: 63 kg

DRUGS (9)
  1. SENNOSIDES. [Concomitant]
     Active Substance: SENNOSIDES
  2. ALPRAZOLAM. [Concomitant]
     Active Substance: ALPRAZOLAM
  3. ACETAMINOPHEN. [Concomitant]
     Active Substance: ACETAMINOPHEN
  4. MORPHINE [Concomitant]
     Active Substance: MORPHINE
  5. BISACODYL. [Concomitant]
     Active Substance: BISACODYL
  6. ONDANSETRON [Concomitant]
     Active Substance: ONDANSETRON
  7. DOCUSATE [Concomitant]
     Active Substance: DOCUSATE
  8. APIXABAN [Suspect]
     Active Substance: APIXABAN
     Indication: THROMBOSIS
     Dosage: BID PEG TUBE
     Dates: start: 20171031
  9. POLYETHYLENE GLYCOL [Concomitant]
     Active Substance: POLYETHYLENE GLYCOLS

REACTIONS (2)
  - Vomiting [None]
  - Small intestinal obstruction [None]

NARRATIVE: CASE EVENT DATE: 20180301
